FAERS Safety Report 9897218 (Version 1)
Quarter: 2014Q1

REPORT INFORMATION
  Report Type: Report from Study
  Country: GB (occurrence: GB)
  Receive Date: 20140214
  Receipt Date: 20140214
  Transmission Date: 20141002
  Serious: Yes (Other)
  Sender: FDA-Public Use
  Company Number: GB-AMGEN-GBRCT2014009975

PATIENT
  Age: 28 Year
  Sex: Female

DRUGS (1)
  1. ETANERCEPT [Suspect]
     Indication: PRODUCT USED FOR UNKNOWN INDICATION
     Dosage: 50 MG, QWK
     Route: 065
     Dates: start: 20111128

REACTIONS (1)
  - Abortion spontaneous [Unknown]
